FAERS Safety Report 9468065 (Version 1)
Quarter: 2013Q3

REPORT INFORMATION
  Report Type: Spontaneous
  Country: US (occurrence: None)
  Receive Date: 20130819
  Receipt Date: 20130819
  Transmission Date: 20140515
  Serious: No
  Sender: FDA-Public Use
  Company Number: None

PATIENT
  Sex: 0

DRUGS (2)
  1. CARDENE [Suspect]
  2. CARDIZEM [Suspect]

REACTIONS (4)
  - Heart rate decreased [None]
  - Haemodynamic instability [None]
  - Wrong drug administered [None]
  - Medication error [None]
